FAERS Safety Report 26001782 (Version 1)
Quarter: 2025Q4

REPORT INFORMATION
  Report Type: Spontaneous
  Country: EU (occurrence: EU)
  Receive Date: 20251105
  Receipt Date: 20251105
  Transmission Date: 20260117
  Serious: Yes (Death, Other)
  Sender: ASTELLAS
  Company Number: None

PATIENT
  Age: 63 Year
  Sex: Female
  Weight: 83 kg

DRUGS (2)
  1. AMPHOTERICIN B [Suspect]
     Active Substance: AMPHOTERICIN B
     Indication: Product used for unknown indication
     Dosage: 3 MG/KG, QD
     Route: 065
  2. FUNGIZONE [Suspect]
     Active Substance: AMPHOTERICIN B
     Indication: Wrong product administered
     Dosage: 3 MG/KG (250 MG)
     Route: 050
     Dates: start: 20250321, end: 20250321

REACTIONS (4)
  - Wrong product administered [Fatal]
  - Accidental overdose [Fatal]
  - Acute kidney injury [Fatal]
  - Septic shock [Fatal]

NARRATIVE: CASE EVENT DATE: 20250321
